FAERS Safety Report 7374093-6 (Version None)
Quarter: 2011Q1

REPORT INFORMATION
  Report Type: 
  Country: None (occurrence: None)
  Receive Date: 20110325
  Receipt Date: 20100427
  Transmission Date: 20110831
  Serious: No
  Sender: FDA-Public Use
  Company Number: US-MYLANLABS-2010S1007577

PATIENT
  Age: 74 Year
  Sex: Female
  Weight: 72.58 kg

DRUGS (5)
  1. CALCIUM [Concomitant]
     Indication: VITAMIN SUPPLEMENTATION
     Route: 048
  2. TAMOXIFEN CITRATE [Suspect]
     Indication: BREAST CANCER
     Route: 048
     Dates: start: 20100323
  3. ATIVAN [Concomitant]
     Indication: ANXIETY
     Route: 048
  4. SEROQUEL [Concomitant]
     Indication: INSOMNIA
     Route: 048
     Dates: start: 20100128
  5. ACETAMINOPHEN [Concomitant]
     Indication: PAIN

REACTIONS (4)
  - VAGINAL DISCHARGE [None]
  - PELVIC DISCOMFORT [None]
  - REACTION TO DRUG EXCIPIENTS [None]
  - BLOOD PRESSURE INCREASED [None]
